FAERS Safety Report 11454513 (Version 1)
Quarter: 2015Q3

REPORT INFORMATION
  Report Type: Spontaneous
  Country: US (occurrence: US)
  Receive Date: 20150831
  Receipt Date: 20150831
  Transmission Date: 20151125
  Serious: Yes (Other)
  Sender: FDA-Public Use
  Company Number: US-ELI_LILLY_AND_COMPANY-US201004002283

PATIENT
  Age: 65 Year
  Sex: Female

DRUGS (7)
  1. ARTHROTEC [Concomitant]
     Active Substance: DICLOFENAC SODIUM\MISOPROSTOL
     Indication: OSTEOARTHRITIS
  2. MULTIVITAMIN [Concomitant]
     Active Substance: VITAMINS
  3. CYMBALTA [Suspect]
     Active Substance: DULOXETINE HYDROCHLORIDE
     Dosage: 30 MG, DAILY (1/D)
     Dates: start: 20100323
  4. AMBIEN CR [Concomitant]
     Active Substance: ZOLPIDEM TARTRATE
  5. CYMBALTA [Suspect]
     Active Substance: DULOXETINE HYDROCHLORIDE
     Indication: ERYTHROMELALGIA
     Dosage: 20 MG, UNK
     Dates: start: 20100309, end: 20100322
  6. ZOCOR [Concomitant]
     Active Substance: SIMVASTATIN
  7. GLUCOSAMINE /CHOND /03040701/ [Concomitant]

REACTIONS (1)
  - Rectal haemorrhage [Not Recovered/Not Resolved]

NARRATIVE: CASE EVENT DATE: 20100406
